FAERS Safety Report 13142089 (Version 1)
Quarter: 2017Q1

REPORT INFORMATION
  Report Type: Spontaneous
  Country: US (occurrence: US)
  Receive Date: 20170123
  Receipt Date: 20170123
  Transmission Date: 20170428
  Serious: Yes (Other)
  Sender: FDA-Public Use
  Company Number: US-ALEXION PHARMACEUTICALS INC-A201700348

PATIENT
  Age: 26 Year
  Sex: Male

DRUGS (5)
  1. TACROLIMUS. [Concomitant]
     Active Substance: TACROLIMUS
     Indication: PRODUCT USED FOR UNKNOWN INDICATION
     Route: 065
  2. CELLCEPT [Concomitant]
     Active Substance: MYCOPHENOLATE MOFETIL\MYCOPHENOLATE MOFETIL HYDROCHLORIDE
     Indication: PRODUCT USED FOR UNKNOWN INDICATION
     Dosage: 500 MG, BID
     Route: 048
  3. SOLIRIS [Suspect]
     Active Substance: ECULIZUMAB
     Dosage: 1200 MG, Q2W
     Route: 042
  4. SOLIRIS [Suspect]
     Active Substance: ECULIZUMAB
     Indication: OFF LABEL USE
     Dosage: UNK
     Route: 042
     Dates: start: 201504
  5. SOLIRIS [Suspect]
     Active Substance: ECULIZUMAB
     Indication: C3 GLOMERULOPATHY
     Dosage: UNK
     Route: 042
     Dates: start: 20140127, end: 201409

REACTIONS (3)
  - Adenosine deaminase abnormal [Unknown]
  - Renal tubular necrosis [Unknown]
  - Off label use [Unknown]
